FAERS Safety Report 7381861-3 (Version None)
Quarter: 2011Q1

REPORT INFORMATION
  Report Type: 
  Country: None (occurrence: None)
  Receive Date: 20110329
  Receipt Date: 20110325
  Transmission Date: 20110831
  Serious: Yes (Other)
  Sender: FDA-Public Use
  Company Number: VE-PFIZER INC-2011063422

PATIENT
  Age: 57 Year
  Sex: Male

DRUGS (7)
  1. LIPITOR [Suspect]
     Indication: HYPERCHOLESTEROLAEMIA
     Dosage: 80 MG, 1X/DAY
     Route: 048
     Dates: start: 20050101
  2. PLAVIX [Concomitant]
     Dosage: 75 MG, 1X/DAY
     Route: 048
  3. BLOKIUM [Concomitant]
     Dosage: 50 MG, 1X/DAY
     Route: 048
  4. ASCRIPTIN [Concomitant]
     Dosage: UNK
     Route: 048
  5. LIPITOR [Suspect]
     Indication: HYPERTRIGLYCERIDAEMIA
  6. ALDACTONE [Concomitant]
     Dosage: 100 MG, 1X/DAY
     Route: 048
  7. COZAAR [Concomitant]
     Dosage: 50 MG, 1X/DAY
     Route: 048

REACTIONS (2)
  - CARDIAC OPERATION [None]
  - CEREBROVASCULAR ACCIDENT [None]
